FAERS Safety Report 9722326 (Version 2)
Quarter: 2014Q1

REPORT INFORMATION
  Report Type: Report from Study
  Country: KR (occurrence: KR)
  Receive Date: 20131202
  Receipt Date: 20140113
  Transmission Date: 20141002
  Serious: Yes (Hospitalization, Other)
  Sender: FDA-Public Use
  Company Number: KR-BAYER-2013-143174

PATIENT
  Age: 71 Year
  Sex: Female

DRUGS (12)
  1. SORAFENIB (RAF KINASE INHIBITOR) [Suspect]
     Indication: HEPATOCELLULAR CARCINOMA
     Dosage: 800 MG, UNK
     Route: 048
     Dates: start: 20130610, end: 20130618
  2. SORAFENIB (RAF KINASE INHIBITOR) [Suspect]
     Indication: HEPATOCELLULAR CARCINOMA
     Dosage: UNK
     Route: 048
     Dates: start: 2013, end: 20130728
  3. CHLORHEXIDINE GLUCONATE [Concomitant]
     Dosage: UNK
     Dates: start: 20130610
  4. HYDROCORTISON [HYDROCORTISONE] [Concomitant]
     Dosage: UNK
     Dates: start: 20130610
  5. LOPERAMIDE [Concomitant]
     Dosage: UNK
     Dates: start: 20130610
  6. SILYMARIN [Concomitant]
  7. SUCRALFATE [Concomitant]
  8. TIROPRAMIDE [Concomitant]
  9. VITAMIN B COMPLEX [Concomitant]
  10. RABEPRAZOLE [Concomitant]
  11. PROPANOLOL [Concomitant]
  12. AMLODIPINE [Concomitant]
     Indication: BLOOD PRESSURE INCREASED
     Dosage: UNK
     Dates: start: 20130625

REACTIONS (3)
  - Transient ischaemic attack [Recovered/Resolved with Sequelae]
  - Dizziness [Recovered/Resolved]
  - Blood pressure increased [Recovered/Resolved]
